FAERS Safety Report 5787071-5 (Version None)
Quarter: 2008Q2

REPORT INFORMATION
  Report Type: 
  Country: None (occurrence: None)
  Receive Date: 20080625
  Receipt Date: 20080620
  Transmission Date: 20081010
  Serious: Yes (Hospitalization)
  Sender: FDA-Public Use
  Company Number: US-BRISTOL-MYERS SQUIBB COMPANY-14236988

PATIENT
  Sex: Male

DRUGS (2)
  1. ERBITUX [Suspect]
     Indication: HEAD AND NECK CANCER
  2. ERBITUX [Suspect]
     Indication: COLORECTAL CANCER METASTATIC

REACTIONS (1)
  - DERMATITIS CONTACT [None]
